FAERS Safety Report 5340593-3 (Version None)
Quarter: 2007Q2

REPORT INFORMATION
  Report Type: 
  Country: None (occurrence: None)
  Receive Date: 20070531
  Receipt Date: 20070528
  Transmission Date: 20071010
  Serious: Yes (Other)
  Sender: FDA-Public Use
  Company Number: CA-ASTRAZENECA-2002UW14400

PATIENT
  Age: 85 Year
  Sex: Male
  Weight: 66.4 kg

DRUGS (9)
  1. SEROQUEL [Suspect]
     Indication: SCHIZOPHRENIA
     Route: 048
     Dates: start: 20011023, end: 20011031
  2. ZYPREXA [Suspect]
     Indication: SCHIZOPHRENIA
     Route: 048
     Dates: start: 20000401, end: 20011001
  3. ASPIRIN [Concomitant]
  4. CENTRUM FORTE [Concomitant]
  5. CIMETIDINE HCL [Concomitant]
  6. LORAZEPAM [Concomitant]
  7. VITAMIN B COMPLEX CAP [Concomitant]
  8. VITAMIN E [Concomitant]
  9. ZOPICLONE [Concomitant]

REACTIONS (2)
  - PURPURA [None]
  - THROMBOCYTOPENIA [None]
